FAERS Safety Report 12136822 (Version 1)
Quarter: 2016Q1

REPORT INFORMATION
  Report Type: Spontaneous
  Country: US (occurrence: US)
  Receive Date: 20160302
  Receipt Date: 20160302
  Transmission Date: 20160526
  Serious: Yes (Other)
  Sender: FDA-Public Use
  Company Number: US-WEST-WARD PHARMACEUTICALS CORP.-US-H14001-16-00329

PATIENT
  Sex: Female

DRUGS (1)
  1. INFUMORPH [Suspect]
     Active Substance: MORPHINE SULFATE
     Indication: PAIN
     Route: 037
     Dates: start: 2016

REACTIONS (3)
  - Implant site extravasation [Not Recovered/Not Resolved]
  - Pain [Unknown]
  - Wound [Unknown]

NARRATIVE: CASE EVENT DATE: 2016
